APPROVED DRUG PRODUCT: URSODIOL
Active Ingredient: URSODIOL
Strength: 300MG
Dosage Form/Route: CAPSULE;ORAL
Application: A075517 | Product #001 | TE Code: AB
Applicant: EPIC PHARMA LLC
Approved: Mar 14, 2000 | RLD: No | RS: No | Type: RX